FAERS Safety Report 6815084-0 (Version None)
Quarter: 2010Q3

REPORT INFORMATION
  Report Type: 
  Country: None (occurrence: None)
  Receive Date: 20100702
  Receipt Date: 20100622
  Transmission Date: 20110219
  Serious: Yes (Hospitalization)
  Sender: FDA-Public Use
  Company Number: JP-ABBOTT-10P-087-0624228-00

PATIENT
  Sex: Female
  Weight: 39 kg

DRUGS (20)
  1. HUMIRA [Suspect]
     Indication: RHEUMATOID ARTHRITIS
     Route: 058
     Dates: start: 20090801, end: 20091023
  2. HUMIRA [Suspect]
     Route: 058
     Dates: start: 20091023, end: 20100120
  3. HUMIRA [Suspect]
     Dates: start: 20100303, end: 20100330
  4. METHOTREXATE [Concomitant]
     Indication: PRODUCT USED FOR UNKNOWN INDICATION
     Dates: start: 20090802, end: 20090926
  5. METHOTREXATE [Concomitant]
     Dates: start: 20090927
  6. FOLIC ACID [Concomitant]
     Indication: PRODUCT USED FOR UNKNOWN INDICATION
     Dates: start: 20090804
  7. FARNAZONE [Concomitant]
     Indication: RHEUMATOID ARTHRITIS
     Route: 061
     Dates: start: 20090729
  8. PALECS USUPITA PACKING SHEET [Concomitant]
     Indication: RHEUMATOID ARTHRITIS
     Dosage: ADEQUATE DOSE
     Route: 061
  9. MELOXICAM [Concomitant]
     Indication: RHEUMATOID ARTHRITIS
     Route: 048
     Dates: start: 20091219
  10. PREDNISOLONE [Concomitant]
     Indication: RHEUMATOID ARTHRITIS
     Route: 048
     Dates: start: 20090704, end: 20091119
  11. PREDNISOLONE [Concomitant]
     Route: 048
     Dates: start: 20091120
  12. PREDNISOLONE [Concomitant]
     Route: 048
     Dates: start: 20091120
  13. REBAMIPIDE [Concomitant]
     Indication: GASTRITIS PROPHYLAXIS
     Route: 048
     Dates: start: 20090625, end: 20091119
  14. REBAMIPIDE [Concomitant]
     Dates: start: 20091120, end: 20100401
  15. ISCOTIN [Concomitant]
     Indication: ANTIBIOTIC PROPHYLAXIS
     Route: 048
     Dates: start: 20090709
  16. PYDOXAL [Concomitant]
     Indication: VITAMIN B COMPLEX DEFICIENCY
     Route: 048
     Dates: start: 20090709
  17. CALFINA [Concomitant]
     Indication: OSTEOPOROSIS PROPHYLAXIS
     Route: 048
     Dates: start: 20090704, end: 20100316
  18. CALFINA [Concomitant]
     Route: 048
     Dates: start: 20100316
  19. VOGLIBOSE [Concomitant]
     Indication: HYPERGLYCAEMIA
     Route: 048
     Dates: start: 20091120
  20. ZENOL [Concomitant]
     Indication: PRODUCT USED FOR UNKNOWN INDICATION
     Dosage: ADEQUATE DOSE
     Route: 061
     Dates: start: 20090601

REACTIONS (1)
  - C-REACTIVE PROTEIN INCREASED [None]
